FAERS Safety Report 5647904-X (Version None)
Quarter: 2008Q1

REPORT INFORMATION
  Report Type: 
  Country: None (occurrence: None)
  Receive Date: 20080228
  Receipt Date: 20080219
  Transmission Date: 20080703
  Serious: Yes (Hospitalization, Other)
  Sender: FDA-Public Use
  Company Number: 2008SP003693

PATIENT
  Age: 61 Year
  Sex: Female

DRUGS (12)
  1. MIRALAX [Suspect]
     Indication: CONSTIPATION
     Dosage: PO
     Route: 048
     Dates: start: 20080211, end: 20080215
  2. PRANDIN [Suspect]
     Indication: DRUG USE FOR UNKNOWN INDICATION
     Dosage: PO
     Route: 048
  3. LASIX [Concomitant]
  4. PRILOSEC [Concomitant]
  5. FIORICET [Concomitant]
  6. TOPROL-XL [Concomitant]
  7. DIOVAN [Concomitant]
  8. SYNTHROID [Concomitant]
  9. ALDACTONE [Concomitant]
  10. REGLAN [Concomitant]
  11. MICRO-K [Concomitant]
  12. MUCINEX [Concomitant]

REACTIONS (1)
  - TRANSIENT ISCHAEMIC ATTACK [None]
